FAERS Safety Report 10014255 (Version 4)
Quarter: 2018Q1

REPORT INFORMATION
  Report Type: Spontaneous
  Country: US (occurrence: US)
  Receive Date: 20140317
  Receipt Date: 20180328
  Transmission Date: 20180508
  Serious: Yes (Hospitalization)
  Sender: FDA-Public Use
  Company Number: US-BEH-2013038101

PATIENT
  Age: 50 Year
  Sex: Female
  Weight: 88.45 kg

DRUGS (3)
  1. PRIVIGEN [Suspect]
     Active Substance: HUMAN IMMUNOGLOBULIN G
     Dosage: ATE OF 30 ML/HR FOR 15 MIN, THEN 60 ML/HR FOR 15 MIN, THEN 90 ML/HR FOR 30 MIN THEN 120 ML/HR
     Route: 042
     Dates: start: 20140226, end: 20140226
  2. PRIVIGEN [Suspect]
     Active Substance: HUMAN IMMUNOGLOBULIN G
     Dosage: RATE OF 30 ML/HR FOR 15 MIN, THEN 60 ML/HR FOR 15 MIN, THEN 90 ML/HR FOR 30 MIN THEN 120 ML/HR
     Route: 042
     Dates: start: 20140226, end: 20140226
  3. PRIVIGEN [Suspect]
     Active Substance: HUMAN IMMUNOGLOBULIN G
     Indication: IMMUNODEFICIENCY COMMON VARIABLE
     Dosage: PAST 4 YEARS
     Route: 042

REACTIONS (9)
  - Unresponsive to stimuli [Recovered/Resolved]
  - Malaise [Recovered/Resolved]
  - Road traffic accident [Unknown]
  - Loss of consciousness [Recovered/Resolved]
  - Feeling abnormal [Recovered/Resolved]
  - Liquid product physical issue [Unknown]
  - Headache [Unknown]
  - Aphasia [Recovered/Resolved with Sequelae]
  - Nausea [Unknown]

NARRATIVE: CASE EVENT DATE: 20140226
